FAERS Safety Report 21106643 (Version 1)
Quarter: 2022Q3

REPORT INFORMATION
  Report Type: Spontaneous
  Country: US (occurrence: US)
  Receive Date: 20220720
  Receipt Date: 20220720
  Transmission Date: 20221027
  Serious: No
  Sender: FDA-Public Use
  Company Number: US-BIOGEN-2022BI01116122

PATIENT
  Sex: Female

DRUGS (3)
  1. VUMERITY [Suspect]
     Active Substance: DIROXIMEL FUMARATE
     Indication: Multiple sclerosis
     Route: 050
     Dates: start: 20211122
  2. VUMERITY [Suspect]
     Active Substance: DIROXIMEL FUMARATE
     Route: 050
     Dates: start: 20220423
  3. VUMERITY [Suspect]
     Active Substance: DIROXIMEL FUMARATE
     Route: 050
     Dates: start: 20220511

REACTIONS (26)
  - Product dose omission issue [Unknown]
  - Product dose omission in error [Unknown]
  - Memory impairment [Not Recovered/Not Resolved]
  - Fatigue [Recovered/Resolved]
  - Confusional state [Not Recovered/Not Resolved]
  - Dizziness postural [Not Recovered/Not Resolved]
  - Malaise [Unknown]
  - Feeling abnormal [Recovered/Resolved]
  - Diplopia [Unknown]
  - Visual impairment [Unknown]
  - Vertigo [Unknown]
  - Pain [Unknown]
  - Mouth injury [Unknown]
  - Gait disturbance [Unknown]
  - Paraesthesia [Unknown]
  - Muscle tightness [Unknown]
  - Thirst [Unknown]
  - Constipation [Unknown]
  - Hypoaesthesia [Unknown]
  - Disturbance in attention [Unknown]
  - Depressed mood [Unknown]
  - Fall [Recovered/Resolved]
  - Multiple sclerosis [Recovered/Resolved]
  - Abdominal pain upper [Unknown]
  - Flushing [Unknown]
  - Diarrhoea [Unknown]

NARRATIVE: CASE EVENT DATE: 20220101
